FAERS Safety Report 10712880 (Version 4)
Quarter: 2015Q3

REPORT INFORMATION
  Report Type: Spontaneous
  Country: US (occurrence: US)
  Receive Date: 20150115
  Receipt Date: 20150804
  Transmission Date: 20151125
  Serious: Yes (Hospitalization, Other)
  Sender: FDA-Public Use
  Company Number: US-UCBSA-2015000950

PATIENT
  Age: 34 Year
  Sex: Male

DRUGS (3)
  1. CIMZIA [Suspect]
     Active Substance: CERTOLIZUMAB PEGOL
     Dosage: 5,6,7 MAINTENANCE INJCTION
     Dates: start: 20150118, end: 20150319
  2. CIMZIA [Suspect]
     Active Substance: CERTOLIZUMAB PEGOL
     Dosage: 1,2,3,4,MAINTENANCE INJECTION
     Dates: start: 20140917, end: 20150109
  3. CIMZIA [Suspect]
     Active Substance: CERTOLIZUMAB PEGOL
     Indication: CROHN^S DISEASE
     Dosage: 0,2,4 WEEK STARTER INJECTION
     Dates: start: 20140710, end: 20140813

REACTIONS (5)
  - Infected fistula [Unknown]
  - Hernia [Recovered/Resolved with Sequelae]
  - Small intestinal obstruction [Recovered/Resolved with Sequelae]
  - Abdominal pain [Recovered/Resolved with Sequelae]
  - Fistula discharge [Recovered/Resolved with Sequelae]

NARRATIVE: CASE EVENT DATE: 20141228
